FAERS Safety Report 7391407-1 (Version None)
Quarter: 2011Q2

REPORT INFORMATION
  Report Type: 
  Country: None (occurrence: None)
  Receive Date: 20110404
  Receipt Date: 20110321
  Transmission Date: 20111010
  Serious: Yes (Hospitalization)
  Sender: FDA-Public Use
  Company Number: US-JNJFOC-20110308563

PATIENT
  Sex: Male
  Weight: 60 kg

DRUGS (5)
  1. REMICADE [Suspect]
     Indication: PROPHYLAXIS
     Route: 042
  2. MERCAPTOPURINE [Concomitant]
  3. REMICADE [Suspect]
     Route: 042
  4. REMICADE [Suspect]
     Indication: INFLAMMATORY BOWEL DISEASE
     Route: 042
  5. REMICADE [Suspect]
     Route: 042

REACTIONS (1)
  - NO THERAPEUTIC RESPONSE [None]
